FAERS Safety Report 4680702-2 (Version None)
Quarter: 2005Q2

REPORT INFORMATION
  Report Type: 
  Country: None (occurrence: None)
  Receive Date: 20050601
  Receipt Date: 20050520
  Transmission Date: 20051028
  Serious: Yes (Other)
  Sender: FDA-Public Use
  Company Number: 2005078263

PATIENT
  Age: 61 Year
  Sex: Female

DRUGS (4)
  1. CABERGOLINE [Suspect]
     Indication: PARKINSON'S DISEASE
     Dosage: 4 MG (2 MG, EVERY DAY), ORAL
     Route: 048
     Dates: start: 20020501, end: 20050323
  2. MADOPARK (BENSERAZIDE HYDROCHLORIDE, LEVODOPA) [Concomitant]
  3. PROPRANOLOL (PROPAROLOL) [Concomitant]
  4. ELDEPRYL [Concomitant]

REACTIONS (5)
  - AORTIC VALVE INCOMPETENCE [None]
  - CHEST DISCOMFORT [None]
  - PALPITATIONS [None]
  - PULMONARY ARTERIAL PRESSURE INCREASED [None]
  - TRICUSPID VALVE INCOMPETENCE [None]
